FAERS Safety Report 4651497-3 (Version None)
Quarter: 2005Q2

REPORT INFORMATION
  Report Type: 
  Country: None (occurrence: None)
  Receive Date: 20050404
  Receipt Date: 20050107
  Transmission Date: 20051028
  Serious: No
  Sender: FDA-Public Use
  Company Number: US_0501110642

PATIENT
  Age: 58 Year
  Sex: Female

DRUGS (7)
  1. CYMBALTA [Suspect]
     Dosage: 40 MG
     Dates: start: 20041215
  2. SYNTHROID [Concomitant]
  3. ZOLOFT [Concomitant]
  4. WELLBUTRIN [Concomitant]
  5. FLEXERIL [Concomitant]
  6. NORVASC [Concomitant]
  7. COUMADIN [Concomitant]

REACTIONS (1)
  - PARANOIA [None]
